FAERS Safety Report 14927794 (Version 5)
Quarter: 2019Q3

REPORT INFORMATION
  Report Type: Report from Study
  Country: DE (occurrence: DE)
  Receive Date: 20180523
  Receipt Date: 20190708
  Transmission Date: 20191004
  Serious: Yes (Hospitalization, Other)
  Sender: FDA-Public Use
  Company Number: DE-MYLANLABS-2018M1032349

PATIENT
  Sex: Female
  Weight: 79.2 kg

DRUGS (7)
  1. ANASTROZOLE. [Suspect]
     Active Substance: ANASTROZOLE
     Indication: BREAST CANCER METASTATIC
     Dosage: 1 MG, QD
     Route: 048
     Dates: start: 20180105, end: 20181113
  2. KISQALI [Suspect]
     Active Substance: RIBOCICLIB
     Indication: BREAST CANCER METASTATIC
     Dosage: 600 MG, QD
     Route: 048
     Dates: start: 20180105, end: 20180124
  3. ANASTROZOLE. [Suspect]
     Active Substance: ANASTROZOLE
     Dosage: 1 MILLIGRAM, QD,1 MG, QD (1-0-0)
     Route: 048
     Dates: start: 20181117, end: 20181120
  4. KISQALI [Suspect]
     Active Substance: RIBOCICLIB
     Dosage: 600 MG, QD
     Route: 048
     Dates: start: 20180201
  5. KISQALI [Suspect]
     Active Substance: RIBOCICLIB
     Dosage: 3 DF, QD,121,7D PAUSE
     Route: 048
     Dates: start: 20180105, end: 20180320
  6. KISQALI [Suspect]
     Active Substance: RIBOCICLIB
     Dosage: 2 DF, QD (200MG)
     Route: 048
     Dates: start: 20180321, end: 20181113
  7. KISQALI [Suspect]
     Active Substance: RIBOCICLIB
     Dosage: 2 DOSAGE FORM, QD,2 DF, QD (200 MG, 2-0-0)
     Route: 048
     Dates: start: 20181117, end: 20181120

REACTIONS (7)
  - Concomitant disease progression [Unknown]
  - Pneumothorax [Recovered/Resolved]
  - Ascites [Unknown]
  - Cough [Recovered/Resolved]
  - General physical health deterioration [Recovered/Resolved]
  - Chronic kidney disease [Unknown]
  - Dyspnoea [Recovering/Resolving]

NARRATIVE: CASE EVENT DATE: 201801
